FAERS Safety Report 7959215-8 (Version None)
Quarter: 2011Q4

REPORT INFORMATION
  Report Type: 
  Country: None (occurrence: None)
  Receive Date: 20111206
  Receipt Date: 20111201
  Transmission Date: 20120403
  Serious: Yes (Hospitalization, Other)
  Sender: FDA-Public Use
  Company Number: FR-PFIZER INC-2011293227

PATIENT
  Age: 83 Year
  Sex: Female

DRUGS (2)
  1. PERINDOPRIL ERBUMINE [Suspect]
     Dosage: UNK
     Route: 048
     Dates: end: 20100507
  2. ALDACTONE [Suspect]
     Dosage: UNK
     Route: 048
     Dates: end: 20100507

REACTIONS (6)
  - CHOLECYSTITIS [None]
  - BRADYCARDIA [None]
  - DEHYDRATION [None]
  - DIABETES MELLITUS INADEQUATE CONTROL [None]
  - HYPERKALAEMIA [None]
  - RENAL FAILURE ACUTE [None]
